FAERS Safety Report 5344283-2 (Version None)
Quarter: 2007Q2

REPORT INFORMATION
  Report Type: 
  Country: None (occurrence: None)
  Receive Date: 20070604
  Receipt Date: 20070522
  Transmission Date: 20071010
  Serious: Yes (Other)
  Sender: FDA-Public Use
  Company Number: US-ELI_LILLY_AND_COMPANY-US200705005894

PATIENT
  Age: 48 Year
  Sex: Female

DRUGS (9)
  1. CYMBALTA [Suspect]
     Dosage: 60 MG, UNK
     Dates: start: 20070418, end: 20070504
  2. CYMBALTA [Suspect]
     Dosage: 30 MG, UNK
     Dates: start: 20070228, end: 20070417
  3. CYMBALTA [Suspect]
     Dosage: 30 MG, UNK
     Dates: start: 20070505, end: 20070522
  4. TEGRETOL [Concomitant]
     Dosage: 200 MG, 2/D
  5. WELLBUTRIN XL [Concomitant]
     Dosage: 150 MEQ, DAILY (1/D)
  6. INSULIN [Concomitant]
  7. ZETIA [Concomitant]
     Indication: BLOOD CHOLESTEROL
     Dosage: 10 MG, UNK
  8. CAPTOPRIL [Concomitant]
     Dosage: 100 MG, 2/D
  9. FAMVIR [Concomitant]
     Dosage: 500 MG, DAILY (1/D)

REACTIONS (3)
  - ALANINE AMINOTRANSFERASE INCREASED [None]
  - ASPARTATE AMINOTRANSFERASE INCREASED [None]
  - GLYCOSYLATED HAEMOGLOBIN INCREASED [None]
